FAERS Safety Report 5775950-4 (Version None)
Quarter: 2008Q2

REPORT INFORMATION
  Report Type: 
  Country: None (occurrence: None)
  Receive Date: 20080613
  Receipt Date: 20080530
  Transmission Date: 20081010
  Serious: Yes (Hospitalization, Other)
  Sender: FDA-Public Use
  Company Number: 2008S1009248

PATIENT
  Age: 40 Year
  Sex: Male

DRUGS (4)
  1. PHENYTOIN SODIUM [Suspect]
     Indication: CONVULSION
     Dosage: 1000 MG; X1; ORAL
     Route: 048
     Dates: end: 20080529
  2. BENADRYL [Suspect]
     Dosage: 200 MG; X1; ORAL
     Route: 048
     Dates: end: 20080529
  3. FOLIC ACID [Concomitant]
  4. DRUG USED IN DIABETES [Concomitant]

REACTIONS (2)
  - MULTIPLE DRUG OVERDOSE INTENTIONAL [None]
  - UNRESPONSIVE TO STIMULI [None]
